FAERS Safety Report 5478323-7 (Version None)
Quarter: 2007Q4

REPORT INFORMATION
  Report Type: 
  Country: None (occurrence: None)
  Receive Date: 20071005
  Receipt Date: 20070925
  Transmission Date: 20080405
  Serious: Yes (Other)
  Sender: FDA-Public Use
  Company Number: US-JNJFOC-20070905271

PATIENT
  Age: 27 Year
  Sex: Female

DRUGS (1)
  1. TOPAMAX [Suspect]
     Indication: EPILEPSY

REACTIONS (3)
  - ABORTION SPONTANEOUS [None]
  - CERVICAL INCOMPETENCE [None]
  - DRUG EXPOSURE DURING PREGNANCY [None]
